FAERS Safety Report 9095565 (Version 1)
Quarter: 2013Q1

REPORT INFORMATION
  Report Type: Spontaneous
  Country: US (occurrence: None)
  Receive Date: 20130123
  Receipt Date: 20130123
  Transmission Date: 20140127
  Serious: Yes (Other)
  Sender: FDA-Public Use
  Company Number: 2013MA000506

PATIENT
  Sex: Male

DRUGS (10)
  1. OXALIPLATIN FOR INJECTION USP 100MG SINGLE-DOSE VIALS (ATLLC) (OXALIPLATIN) [Suspect]
     Indication: CHEMOTHERAPY
     Route: 042
     Dates: start: 20070906, end: 20071129
  2. IRINOTECAN HYDROCHLORIDE INJECTION, 20MG/ML (40MG/2ML AND 100MG/5ML) (ATLLC) (ITRINOTECAN) [Suspect]
     Indication: CHEMOTHERAPY
  3. FLUOROURACIL (FLUOROURACIL) [Suspect]
     Indication: CHEMOTHERAPY
  4. CALCIUM FOLINATE (CALCIUM FOLINATE) [Suspect]
     Indication: CHEMOTHERAPY
  5. DEXAMETHASONE [Concomitant]
  6. METOCLOPRAMIDE [Concomitant]
  7. OMEPRAZOLE [Concomitant]
  8. ZOPRAN [Concomitant]
  9. DIGOXIN [Concomitant]
  10. ONDANSETRON [Concomitant]

REACTIONS (8)
  - Device related infection [None]
  - Lethargy [None]
  - Dyspepsia [None]
  - Dry mouth [None]
  - Neuropathy peripheral [None]
  - Candida infection [None]
  - Genital disorder male [None]
  - Hyperglycaemia [None]
